FAERS Safety Report 4473064-7 (Version None)
Quarter: 2004Q4

REPORT INFORMATION
  Report Type: 
  Country: None (occurrence: None)
  Receive Date: 20041013
  Receipt Date: 20041001
  Transmission Date: 20050328
  Serious: Yes (Hospitalization)
  Sender: FDA-Public Use
  Company Number: GB-GLAXOSMITHKLINE-B0346783A

PATIENT
  Age: 64 Year
  Sex: Female
  Weight: 71 kg

DRUGS (3)
  1. FLIXOTIDE EVOHALER [Suspect]
     Indication: ASTHMA
     Dosage: 500MCG FOUR TIMES PER DAY
     Route: 055
     Dates: start: 20040310
  2. BENDROFLUMETHIAZIDE [Concomitant]
     Dosage: 2.5MG FOUR TIMES PER DAY
     Route: 048
     Dates: start: 19981118
  3. PREDNISOLONE [Concomitant]
     Dosage: 5MG FOUR TIMES PER DAY
     Route: 048
     Dates: start: 20040108

REACTIONS (1)
  - PNEUMONIA [None]
